FAERS Safety Report 23933790 (Version 1)
Quarter: 2024Q2

REPORT INFORMATION
  Report Type: Spontaneous
  Country: CN (occurrence: CN)
  Receive Date: 20240603
  Receipt Date: 20240603
  Transmission Date: 20240716
  Serious: Yes (Other)
  Sender: FDA-Public Use
  Company Number: CN-PFIZER INC-PV202400072069

PATIENT
  Age: 77 Year
  Sex: Female

DRUGS (6)
  1. METHYLPREDNISOLONE SODIUM SUCCINATE [Suspect]
     Active Substance: METHYLPREDNISOLONE SODIUM SUCCINATE
     Indication: Chronic obstructive pulmonary disease
     Dosage: 40 MG, 2X/DAY
     Route: 042
     Dates: start: 20240414, end: 20240417
  2. DOXOFYLLINE [Concomitant]
     Active Substance: DOXOFYLLINE
     Indication: Chronic obstructive pulmonary disease
     Dosage: 0.200 G, 2X/DAY
     Route: 041
     Dates: start: 20240414, end: 20240416
  3. FLUCONAZOLE [Concomitant]
     Active Substance: FLUCONAZOLE
     Indication: Anti-infective therapy
     Dosage: 0.200 G, 1X/DAY
     Route: 041
     Dates: start: 20240415, end: 20240418
  4. SODIUM CHLORIDE [Concomitant]
     Active Substance: SODIUM CHLORIDE
     Indication: Vehicle solution use
     Dosage: 20.000 ML, 2X/DAY
     Route: 041
     Dates: start: 20240414, end: 20240417
  5. PIPERACILLIN AND TAZOBACTAM [Concomitant]
     Active Substance: PIPERACILLIN SODIUM\TAZOBACTAM SODIUM
     Indication: Anti-infective therapy
     Dosage: 4.500 G, 3X/DAY
     Route: 041
     Dates: start: 20240414, end: 20240418
  6. TERBUTALINE SULFATE [Concomitant]
     Active Substance: TERBUTALINE SULFATE
     Dosage: 5.000 MG, 2X/DAY
     Dates: start: 20240414, end: 20240416

REACTIONS (6)
  - Tremor [Unknown]
  - Mental disorder [Unknown]
  - Agitation [Unknown]
  - Disorganised speech [Unknown]
  - Psychomotor hyperactivity [Unknown]
  - Hyperhidrosis [Unknown]

NARRATIVE: CASE EVENT DATE: 20240415
